FAERS Safety Report 24528347 (Version 2)
Quarter: 2024Q4

REPORT INFORMATION
  Report Type: Spontaneous
  Country: IT (occurrence: IT)
  Receive Date: 20241021
  Receipt Date: 20241030
  Transmission Date: 20250115
  Serious: Yes (Other)
  Sender: HIKMA
  Company Number: None

PATIENT

DRUGS (1)
  1. EPIRUBICIN [Suspect]
     Active Substance: EPIRUBICIN
     Indication: Anaplastic thyroid cancer
     Dosage: 97 MILLIGRAM
     Route: 042
     Dates: start: 20240415, end: 20240415

REACTIONS (6)
  - Muscle spasms [Recovering/Resolving]
  - Leukocytosis [Recovering/Resolving]
  - Blood creatine phosphokinase increased [Recovering/Resolving]
  - Thrombocytopenia [Recovering/Resolving]
  - Back pain [Recovering/Resolving]
  - Off label use [Recovering/Resolving]

NARRATIVE: CASE EVENT DATE: 20240415
